FAERS Safety Report 21802728 (Version 1)
Quarter: 2022Q4

REPORT INFORMATION
  Report Type: Spontaneous
  Country: KR (occurrence: KR)
  Receive Date: 20221231
  Receipt Date: 20221231
  Transmission Date: 20230113
  Serious: Yes (Hospitalization, Other)
  Sender: FDA-Public Use
  Company Number: KR-MLMSERVICE-20221214-3979776-1

PATIENT
  Age: 75 Year
  Sex: Male

DRUGS (2)
  1. CISPLATIN [Suspect]
     Active Substance: CISPLATIN
     Indication: Oesophageal squamous cell carcinoma
     Dosage: CUMULATIVE DOSE: 7 CYCLICAL
  2. FLUOROURACIL [Suspect]
     Active Substance: FLUOROURACIL
     Indication: Oesophageal squamous cell carcinoma
     Dosage: CUMULATIVE DOSE: 7 CYCLICAL

REACTIONS (7)
  - Infective spondylitis [Recovering/Resolving]
  - Necrotising oesophagitis [Recovering/Resolving]
  - Staphylococcal infection [Recovering/Resolving]
  - Oesophageal infection [Recovering/Resolving]
  - Spinal cord compression [Recovering/Resolving]
  - Intervertebral disc displacement [Recovering/Resolving]
  - Extradural abscess [Recovering/Resolving]
